FAERS Safety Report 7643911-6 (Version None)
Quarter: 2011Q3

REPORT INFORMATION
  Report Type: 
  Country: None (occurrence: None)
  Receive Date: 20110729
  Receipt Date: 20110418
  Transmission Date: 20111222
  Serious: No
  Sender: FDA-Public Use
  Company Number: US-GLAXOSMITHKLINE-A0924247A

PATIENT
  Age: 45 Year
  Sex: Female
  Weight: 50.9 kg

DRUGS (2)
  1. MAXALT [Suspect]
     Indication: MIGRAINE
  2. SUMATRIPTAN SUCCINATE [Suspect]
     Indication: MIGRAINE
     Route: 048

REACTIONS (6)
  - CHILLS [None]
  - FEAR [None]
  - VOMITING [None]
  - STRESS [None]
  - THERAPEUTIC RESPONSE DECREASED [None]
  - DRUG INEFFECTIVE [None]
